FAERS Safety Report 21401420 (Version 1)
Quarter: 2022Q4

REPORT INFORMATION
  Report Type: Report from Study
  Country: US (occurrence: US)
  Receive Date: 20221003
  Receipt Date: 20221003
  Transmission Date: 20230112
  Serious: No
  Sender: FDA-Public Use
  Company Number: US-ABBVIE-4132050

PATIENT
  Sex: Female

DRUGS (1)
  1. HUMIRA [Suspect]
     Active Substance: ADALIMUMAB
     Indication: Ankylosing spondylitis
     Route: 058
     Dates: start: 20210826

REACTIONS (5)
  - Tendon injury [Unknown]
  - Joint range of motion decreased [Unknown]
  - Grip strength decreased [Unknown]
  - Impaired self-care [Unknown]
  - Mobility decreased [Unknown]

NARRATIVE: CASE EVENT DATE: 20220101
